FAERS Safety Report 21265029 (Version 1)
Quarter: 2022Q3

REPORT INFORMATION
  Report Type: Spontaneous
  Country: FR (occurrence: FR)
  Receive Date: 20220829
  Receipt Date: 20220829
  Transmission Date: 20221026
  Serious: Yes (Death)
  Sender: FDA-Public Use
  Company Number: None

PATIENT
  Age: 74 Year
  Sex: Male
  Weight: 106 kg

DRUGS (9)
  1. CLOPIDOGREL [Interacting]
     Active Substance: CLOPIDOGREL BISULFATE
     Indication: Thrombosis prophylaxis
     Dosage: UNIT DOSE :  75MG, FREQUENCY TIME : 1 DAY,DURATION : 1 HOURS , THERAPY START DATE  : NAS
     Route: 065
     Dates: end: 20220726
  2. ALTEPLASE [Interacting]
     Active Substance: ALTEPLASE
     Indication: Thrombolysis
     Dosage: UNIT DOSE : 81 MG , FREQUENCY TIME : 1 HOURS , FREQUENCY TIME : TOTAL , THERAPY END DATE : ASKU
     Route: 065
     Dates: end: 20220726
  3. ALPRAZOLAM [Concomitant]
     Active Substance: ALPRAZOLAM
     Indication: Product used for unknown indication
     Dosage: UNIT DOSE : 0.25 MG, FREQUENCY TIME : 1 DAY , THERAPY START DATE : ASKU
     Route: 065
     Dates: end: 20220726
  4. VENLAFAXINE [Concomitant]
     Active Substance: VENLAFAXINE HYDROCHLORIDE
     Indication: Product used for unknown indication
     Dosage: UNIT DOSE : 75 MG, FREQUENCY TIME : 1 DAY ,THERAPY START DATE : ASKU
     Route: 065
     Dates: end: 20220726
  5. DUTASTERIDE [Concomitant]
     Active Substance: DUTASTERIDE
     Indication: Product used for unknown indication
     Dosage: UNIT DOSE :0.5MG , FREQUENCY TIME : 1 DAY ,  THERAPY START DATE : ASKU
     Route: 065
     Dates: end: 20220726
  6. RAMIPRIL [Concomitant]
     Active Substance: RAMIPRIL
     Indication: Product used for unknown indication
     Dosage: UNIT DOSE :2.5 MG , FREQUENCY TIME : 1 DAY ,  THERAPY START DATE : ASKU
     Route: 065
     Dates: end: 20220726
  7. PRAVASTATIN SODIUM [Concomitant]
     Active Substance: PRAVASTATIN SODIUM
     Indication: Product used for unknown indication
     Dosage: UNIT DOSE : 40MG, FREQUENCY TIME : 1 DAY ,  THERAPY START DATE : ASKU
     Route: 065
     Dates: end: 20220726
  8. TAMSULOSIN HYDROCHLORIDE [Concomitant]
     Active Substance: TAMSULOSIN HYDROCHLORIDE
     Indication: Product used for unknown indication
     Dosage: UNIT DOSE :0.4MG , FREQUENCY TIME : 1 DAY ,  THERAPY START DATE : ASKU
     Route: 065
     Dates: end: 20220726
  9. PANTOPRAZOLE [Concomitant]
     Active Substance: PANTOPRAZOLE
     Indication: Product used for unknown indication
     Dosage: UNIT DOSE :40 MG , FREQUENCY TIME : 1 DAY , THERAPY START DATE : ASKU, THERAPY END DATE : ASKU
     Route: 065

REACTIONS (2)
  - Intraventricular haemorrhage [Fatal]
  - Drug interaction [Fatal]

NARRATIVE: CASE EVENT DATE: 20220727
